FAERS Safety Report 19289670 (Version 10)
Quarter: 2022Q2

REPORT INFORMATION
  Report Type: Report from Study
  Country: US (occurrence: US)
  Receive Date: 20210522
  Receipt Date: 20220507
  Transmission Date: 20220721
  Serious: Yes (Other)
  Sender: FDA-Public Use
  Company Number: US-NOVARTISTESTPH-NVSC2021US108078

PATIENT
  Sex: Female
  Weight: 102.1 kg

DRUGS (46)
  1. ENTRESTO [Suspect]
     Active Substance: SACUBITRIL\VALSARTAN
     Indication: Product used for unknown indication
     Dosage: 1 DOSAGE FORM, BID (24/26MG)
     Route: 048
     Dates: start: 20210511
  2. ENTRESTO [Suspect]
     Active Substance: SACUBITRIL\VALSARTAN
     Dosage: 1 DOSAGE FORM, BID (24/26MG) (180 TABLET)
     Route: 048
  3. METHOTREXATE [Suspect]
     Active Substance: METHOTREXATE
     Indication: Product used for unknown indication
     Dosage: 10 MG, QW
     Route: 065
  4. PREDNISONE [Suspect]
     Active Substance: PREDNISONE
     Indication: Product used for unknown indication
     Dosage: UNK
     Route: 065
  5. ELIQUIS [Suspect]
     Active Substance: APIXABAN
     Indication: Anticoagulant therapy
     Dosage: 1 DOSAGE FORM, BID (AS DIRECTED)
     Route: 048
     Dates: start: 20201027
  6. ELIQUIS [Suspect]
     Active Substance: APIXABAN
     Indication: Cardiovascular event prophylaxis
  7. LEVOTHYROXINE [Suspect]
     Active Substance: LEVOTHYROXINE
     Indication: Hypothyroidism
     Dosage: 125 UG, BID
     Route: 065
  8. VALTREX [Concomitant]
     Active Substance: VALACYCLOVIR HYDROCHLORIDE
     Indication: Product used for unknown indication
     Dosage: 1 DOSAGE FORM, BID (FOR FIVE DAYS)
     Route: 048
     Dates: start: 20210927
  9. BUMEX [Concomitant]
     Active Substance: BUMETANIDE
     Indication: Swelling
     Dosage: 1 DOSAGE FORM, EVERY OTHER DAY
     Route: 065
     Dates: start: 20201020
  10. BUMEX [Concomitant]
     Active Substance: BUMETANIDE
     Dosage: 0.5 DOSAGE FORM, PRN
     Route: 065
  11. BUMEX [Concomitant]
     Active Substance: BUMETANIDE
     Dosage: 1 DOSAGE FORM, PRN
     Route: 065
  12. COREG [Concomitant]
     Active Substance: CARVEDILOL
     Indication: Product used for unknown indication
     Dosage: UNK, BID
     Route: 065
     Dates: start: 20210413
  13. KLONOPIN [Concomitant]
     Active Substance: CLONAZEPAM
     Indication: Product used for unknown indication
     Dosage: 0.5 DOSAGE FORM, BID (AS NEEDED FOR 30 DAYS)
     Route: 048
     Dates: start: 20210714
  14. KLONOPIN [Concomitant]
     Active Substance: CLONAZEPAM
     Dosage: 1 DOSAGE FORM, BID (AS NEEDED FOR 30 DAYS)
     Route: 048
  15. JARDIANCE [Concomitant]
     Active Substance: EMPAGLIFLOZIN
     Indication: Diabetes mellitus
     Dosage: 1 DOSAGE FORM, QD (10 MG 90 TABLETS TOTAL)
     Route: 048
     Dates: start: 20210422
  16. ALLEGRA [Concomitant]
     Active Substance: FEXOFENADINE HYDROCHLORIDE
     Indication: Product used for unknown indication
     Dosage: 1 DOSAGE FORM, QD (180 MG 90 TABLETS)
     Route: 048
     Dates: start: 20201106, end: 20211106
  17. ALLEGRA [Concomitant]
     Active Substance: FEXOFENADINE HYDROCHLORIDE
     Dosage: 1 UNK (180MG TOTAL)
     Route: 048
  18. FLONASE [Concomitant]
     Active Substance: FLUTICASONE PROPIONATE
     Indication: Product used for unknown indication
     Dosage: 16 G, QD (50MCG/ACTUATION, 2 SPRAYS INTO EACH NOSTRIL)
     Route: 045
     Dates: start: 20201106
  19. FOLVITE [Concomitant]
     Active Substance: FOLIC ACID
     Indication: Product used for unknown indication
     Dosage: 5 DOSAGE FORM, QD (5 MG 450 TOTAL)
     Route: 048
     Dates: start: 20210902, end: 20211026
  20. FOLVITE [Concomitant]
     Active Substance: FOLIC ACID
     Dosage: 5 DOSAGE FORM, QD (5MG TOTAL)
     Route: 048
     Dates: start: 20211026
  21. JANUVIA [Concomitant]
     Active Substance: SITAGLIPTIN PHOSPHATE
     Indication: Diabetes mellitus
     Dosage: 50 MG (EVERY MORNING BEFORE BREAKFAST)
     Route: 065
     Dates: start: 20181114
  22. CYTOMEL [Concomitant]
     Active Substance: LIOTHYRONINE SODIUM
     Indication: Product used for unknown indication
     Dosage: 1 DOSAGE FORM, BID
     Route: 048
  23. CYTOMEL [Concomitant]
     Active Substance: LIOTHYRONINE SODIUM
     Dosage: 100 UG, BID
     Route: 048
  24. GLUMETZA [Concomitant]
     Active Substance: METFORMIN HYDROCHLORIDE
     Indication: Product used for unknown indication
     Dosage: 1 DOSAGE FORM, BID (24 HR TABLET)
     Route: 048
     Dates: start: 20210628
  25. RHEUMATREX [Concomitant]
     Active Substance: METHOTREXATE SODIUM
     Indication: Product used for unknown indication
     Dosage: 4 DOSAGE FORM, QW (10MG TOTAL)
     Route: 048
     Dates: start: 20201106, end: 20211026
  26. RHEUMATREX [Concomitant]
     Active Substance: METHOTREXATE SODIUM
     Dosage: 4 DOSAGE FORM, QW (10MG TOTAL)
     Route: 048
     Dates: start: 20211026, end: 20211026
  27. SINGULAIR [Concomitant]
     Active Substance: MONTELUKAST SODIUM
     Indication: Product used for unknown indication
     Dosage: UNK
     Route: 065
     Dates: start: 20180926
  28. BACTROBAN [Concomitant]
     Active Substance: MUPIROCIN\MUPIROCIN CALCIUM
     Indication: Product used for unknown indication
     Dosage: UNK, BID (APPLY TO THE AFFECTED AREA AS DIRECTED)
     Route: 065
     Dates: start: 20210315
  29. MYCOSTATIN [Concomitant]
     Active Substance: NYSTATIN
     Indication: Product used for unknown indication
     Dosage: UNK, PRN 100,000 UNIT/ML (ORAL SUSPENSION)
     Route: 065
     Dates: start: 20200520
  30. PRILOSEC [Concomitant]
     Active Substance: OMEPRAZOLE MAGNESIUM
     Indication: Product used for unknown indication
     Dosage: UNK, QD
     Route: 065
     Dates: start: 20210410
  31. ZOFRAN [Concomitant]
     Active Substance: ONDANSETRON HYDROCHLORIDE
     Indication: Nausea
     Dosage: 1 DOSAGE FORM, DISINTEGRATING TABLET Q6H (AS NEEDED)
     Route: 065
     Dates: start: 20200903
  32. PROAIR HFA [Concomitant]
     Active Substance: ALBUTEROL SULFATE
     Indication: Product used for unknown indication
     Dosage: UNK, PRN (90 MCG, ACTUATION)
     Route: 065
     Dates: start: 20200526
  33. SYMBICORT [Concomitant]
     Active Substance: BUDESONIDE\FORMOTEROL FUMARATE DIHYDRATE
     Indication: Product used for unknown indication
     Dosage: UNK, BID (INHALE 2 PUFFS ONE EACH)
     Route: 048
     Dates: start: 20210104
  34. SYNTHROID [Concomitant]
     Active Substance: LEVOTHYROXINE SODIUM
     Indication: Product used for unknown indication
     Dosage: 125 UG (1/2 TABLET IN THE AM, 1/2 TABLET IN THE PM)
     Route: 065
  35. SYNTHROID [Concomitant]
     Active Substance: LEVOTHYROXINE SODIUM
     Dosage: 100 UG (1/2 TABLET IN THE AM, 1/2 TABLET IN THE PM)
     Route: 048
     Dates: start: 20210413
  36. KENALOG [Concomitant]
     Active Substance: TRIAMCINOLONE ACETONIDE
     Indication: Product used for unknown indication
     Dosage: UNK, PRN
     Route: 065
     Dates: start: 20200321
  37. CARVEDILOL [Concomitant]
     Active Substance: CARVEDILOL
     Indication: Product used for unknown indication
     Dosage: 25 MG, BID
     Route: 065
  38. SITAGLIPTIN [Concomitant]
     Active Substance: SITAGLIPTIN
     Indication: Type 2 diabetes mellitus
     Dosage: UNK (DMT2)
     Route: 065
  39. DILTIAZEM [Concomitant]
     Active Substance: DILTIAZEM
     Indication: Product used for unknown indication
     Dosage: UNK
     Route: 065
  40. AMLODIPINE [Concomitant]
     Active Substance: AMLODIPINE BESYLATE
     Indication: Hypertension
     Dosage: UNK
     Route: 065
  41. PROPAFENONE [Concomitant]
     Active Substance: PROPAFENONE
     Indication: Product used for unknown indication
     Dosage: 150 MG, QD
     Route: 065
  42. METFORMIN [Concomitant]
     Active Substance: METFORMIN HYDROCHLORIDE
     Indication: Type 2 diabetes mellitus
     Dosage: UNK
     Route: 065
  43. METFORMIN [Concomitant]
     Active Substance: METFORMIN HYDROCHLORIDE
     Indication: Diabetes mellitus
  44. ATORVASTATIN [Concomitant]
     Active Substance: ATORVASTATIN
     Indication: Hyperlipidaemia
     Dosage: UNK
     Route: 065
  45. CEFTIN [Concomitant]
     Active Substance: CEFUROXIME AXETIL
     Indication: Product used for unknown indication
     Dosage: UNK, QD
     Route: 065
     Dates: start: 20210927
  46. DELTASONE [Concomitant]
     Active Substance: PREDNISONE
     Indication: Product used for unknown indication
     Dosage: 2 DOSAGE FORM, BID (FOR FIVE DAYS)
     Route: 048
     Dates: start: 20210927

REACTIONS (34)
  - Atrial fibrillation [Unknown]
  - Tachycardia induced cardiomyopathy [Unknown]
  - Ischaemic cardiomyopathy [Unknown]
  - Cardiac sarcoidosis [Unknown]
  - Myocarditis [Unknown]
  - Cardiac perfusion defect [Unknown]
  - Pulmonary valve stenosis [Unknown]
  - Pericardial effusion [Recovered/Resolved]
  - Feeling cold [Unknown]
  - Arthralgia [Unknown]
  - Hypokinesia [Unknown]
  - Alopecia [Recovering/Resolving]
  - Ejection fraction decreased [Unknown]
  - Chest pain [Not Recovered/Not Resolved]
  - Myocardial fibrosis [Unknown]
  - Allergic cough [Unknown]
  - Wheezing [Unknown]
  - Unevaluable event [Unknown]
  - High density lipoprotein decreased [Unknown]
  - Blood triglycerides increased [Unknown]
  - Blood thyroid stimulating hormone decreased [Unknown]
  - Obesity [Unknown]
  - Weight abnormal [Unknown]
  - Dyspnoea [Unknown]
  - Fatigue [Not Recovered/Not Resolved]
  - Asthenia [Unknown]
  - Blood urea increased [Unknown]
  - Hypersensitivity [Unknown]
  - Blood creatinine increased [Unknown]
  - Glomerular filtration rate decreased [Unknown]
  - Product dose omission issue [Unknown]
  - Condition aggravated [Unknown]
  - Breast pain [Unknown]
  - Dizziness [Unknown]

NARRATIVE: CASE EVENT DATE: 20200101
